FAERS Safety Report 6223578-4 (Version None)
Quarter: 2009Q2

REPORT INFORMATION
  Report Type: 
  Country: None (occurrence: None)
  Receive Date: 20090610
  Receipt Date: 20090602
  Transmission Date: 20091009
  Serious: Yes (Death, Hospitalization)
  Sender: FDA-Public Use
  Company Number: ADE2009-0647

PATIENT
  Age: 87 Year
  Sex: Female

DRUGS (16)
  1. CEFUROXIME [Suspect]
     Dosage: 750MG, TID, IV
     Route: 042
     Dates: start: 20050823, end: 20050830
  2. CIPROFLOXACIN [Suspect]
     Dosage: 500MG, BID, ORAL
     Route: 048
     Dates: start: 20050915, end: 20050922
  3. LANSOPRAZOLE [Suspect]
     Dosage: 30 MG BID ORAL
     Route: 048
     Dates: start: 20050816, end: 20050920
  4. LANSOPRAZOLE [Concomitant]
  5. ASPIRIN [Concomitant]
  6. CITALOPRAM HYDROBROMIDE [Concomitant]
  7. CO-AMILOFRUSE [Concomitant]
  8. ACETAMINOPHEN W/ CODEINE [Concomitant]
  9. DILTIAZEM [Concomitant]
  10. FLUCONAZOLE [Concomitant]
  11. IPRATROPIUM BROMIDE [Concomitant]
  12. ISOSORBIDE MONONITRATE [Concomitant]
  13. SANDO-K [Concomitant]
  14. SERETIDE [Concomitant]
  15. SODIUM BICARBONATE [Concomitant]
  16. TIOTROPIUM BROMIDE [Concomitant]

REACTIONS (5)
  - CLOSTRIDIAL INFECTION [None]
  - GENERAL PHYSICAL HEALTH DETERIORATION [None]
  - INTESTINAL ISCHAEMIA [None]
  - PERITONITIS [None]
  - REFUSAL OF TREATMENT BY PATIENT [None]
